FAERS Safety Report 20544342 (Version 2)
Quarter: 2022Q1

REPORT INFORMATION
  Report Type: Spontaneous
  Country: US (occurrence: US)
  Receive Date: 20220303
  Receipt Date: 20220316
  Transmission Date: 20220424
  Serious: No
  Sender: FDA-Public Use
  Company Number: US-ORGANON-O2203USA000007

PATIENT
  Sex: Female
  Weight: 100.1 kg

DRUGS (1)
  1. NEXPLANON [Suspect]
     Active Substance: ETONOGESTREL
     Dosage: 68MG EVERY 3 YEARS
     Route: 059
     Dates: start: 20200924

REACTIONS (2)
  - Complication associated with device [Unknown]
  - No adverse event [Unknown]
